FAERS Safety Report 6107522-6 (Version None)
Quarter: 2009Q1

REPORT INFORMATION
  Report Type: 
  Country: None (occurrence: None)
  Receive Date: 20090305
  Receipt Date: 20090225
  Transmission Date: 20090719
  Serious: Yes (Other)
  Sender: FDA-Public Use
  Company Number: CHPA2009US03931

PATIENT
  Age: 53 Year
  Sex: Male

DRUGS (1)
  1. VOLTAREN [Suspect]
     Indication: ARTHRITIS
     Dosage: VIA FALSA
     Dates: start: 20080101

REACTIONS (4)
  - ACCIDENTAL EXPOSURE [None]
  - BLINDNESS UNILATERAL [None]
  - EYE IRRITATION [None]
  - INJURY CORNEAL [None]
